FAERS Safety Report 22152248 (Version 1)
Quarter: 2023Q1

REPORT INFORMATION
  Report Type: Spontaneous
  Country: US (occurrence: None)
  Receive Date: 20230329
  Receipt Date: 20230329
  Transmission Date: 20230417
  Serious: Yes (Disabling)
  Sender: FDA-Public Use
  Company Number: None

PATIENT
  Age: 22 Year
  Sex: Female
  Weight: 72 kg

DRUGS (2)
  1. METHYLPHENIDATE [Suspect]
     Active Substance: METHYLPHENIDATE
     Dosage: OTHER QUANTITY : 30 TABLET(S);?
     Route: 048
  2. XULANE [Concomitant]
     Active Substance: ETHINYL ESTRADIOL\NORELGESTROMIN

REACTIONS (7)
  - Product availability issue [None]
  - Therapy interrupted [None]
  - Psychotic disorder [None]
  - Stress [None]
  - Panic reaction [None]
  - Economic problem [None]
  - Product use issue [None]
